FAERS Safety Report 12733221 (Version 1)
Quarter: 2016Q3

REPORT INFORMATION
  Report Type: Spontaneous
  Country: DE (occurrence: DE)
  Receive Date: 20160912
  Receipt Date: 20160912
  Transmission Date: 20161109
  Serious: Yes (Other)
  Sender: FDA-Public Use
  Company Number: GXKR2016DE004138

PATIENT
  Age: 24 Year
  Sex: Male
  Weight: 87 kg

DRUGS (1)
  1. DOXYCYCLIN - 1 A PHARMA [Suspect]
     Active Substance: DOXYCYCLINE
     Indication: ERYTHEMA MIGRANS
     Dosage: 100 MG, QD
     Route: 048
     Dates: start: 20160806, end: 20160826

REACTIONS (5)
  - Epididymitis [Unknown]
  - Back pain [Unknown]
  - Calculus prostatic [Unknown]
  - Scrotal pain [Unknown]
  - Haematuria [Unknown]

NARRATIVE: CASE EVENT DATE: 20160827
